FAERS Safety Report 11130248 (Version 1)
Quarter: 2015Q2

REPORT INFORMATION
  Report Type: Spontaneous
  Country: US (occurrence: US)
  Receive Date: 20150522
  Receipt Date: 20150522
  Transmission Date: 20150821
  Serious: Yes (Other)
  Sender: FDA-Public Use
  Company Number: US-CIPLA LTD.-2015US04068

PATIENT

DRUGS (4)
  1. IRINOTECAN [Suspect]
     Active Substance: IRINOTECAN
     Indication: ANGIOSARCOMA
     Dosage: 50 MG/M2, (MAXIMUM 100MG/DAY) FOR FIRTS 5 CONSECUTIVE DAYS
     Route: 042
  2. VINCRISTINE [Suspect]
     Active Substance: VINCRISTINE
     Indication: ANGIOSARCOMA
     Dosage: 1.5 MG/M2, (2 MG MAXIMUM TOTAL DOSE)
     Route: 042
  3. TEMOZOLOMIDE. [Suspect]
     Active Substance: TEMOZOLOMIDE
     Indication: ANGIOSARCOMA
     Dosage: 100 MG/M2, ON DAYS 1 TO 5 OF THE 21 DAYS CYCLE
     Route: 048
  4. BEVACIZUMAB [Suspect]
     Active Substance: BEVACIZUMAB
     Indication: ANGIOSARCOMA
     Dosage: 15 MG/KG, ON DAY 1 OF THE 21 DAYS CYCLE
     Route: 042

REACTIONS (2)
  - Disease progression [Unknown]
  - Pyrexia [Unknown]
